FAERS Safety Report 6119680-8 (Version None)
Quarter: 2009Q1

REPORT INFORMATION
  Report Type: 
  Country: None (occurrence: None)
  Receive Date: 20090316
  Receipt Date: 20090310
  Transmission Date: 20090719
  Serious: Yes (Other)
  Sender: FDA-Public Use
  Company Number: BR-ASTRAZENECA-2009UW06416

PATIENT
  Age: 47 Year
  Sex: Male

DRUGS (2)
  1. SYMBICORT [Suspect]
     Indication: ASTHMA
     Dosage: 160/4.5 TWICE DAILY
     Route: 055
     Dates: start: 20060101
  2. CETOCONAZOL [Concomitant]
     Indication: FUNGAL INFECTION
     Route: 061
     Dates: start: 20060101

REACTIONS (2)
  - ARTHRITIS [None]
  - PAIN IN EXTREMITY [None]
